FAERS Safety Report 10439255 (Version 2)
Quarter: 2014Q4

REPORT INFORMATION
  Report Type: Spontaneous
  Country: CH (occurrence: CH)
  Receive Date: 20140908
  Receipt Date: 20141001
  Transmission Date: 20150528
  Serious: Yes (Hospitalization, Other)
  Sender: FDA-Public Use
  Company Number: CH-TEVA-505663ISR

PATIENT
  Age: 76 Year
  Sex: Male

DRUGS (1)
  1. OLFEN DUO RELEASE [Suspect]
     Active Substance: DICLOFENAC SODIUM
     Indication: MUSCULOSKELETAL PAIN
     Dosage: 150 MILLIGRAM DAILY;
     Route: 048
     Dates: start: 20140624, end: 20140627

REACTIONS (3)
  - Metabolic acidosis [Unknown]
  - Acute kidney injury [Recovered/Resolved]
  - Dehydration [Unknown]

NARRATIVE: CASE EVENT DATE: 20140627
